FAERS Safety Report 12386265 (Version 1)
Quarter: 2016Q2

REPORT INFORMATION
  Report Type: Spontaneous
  Country: US (occurrence: US)
  Receive Date: 20160519
  Receipt Date: 20160519
  Transmission Date: 20160815
  Serious: Yes (Other)
  Sender: FDA-Public Use
  Company Number: US-AMGEN-USASP2016061819

PATIENT
  Age: 66 Year
  Sex: Female

DRUGS (1)
  1. ENBREL [Suspect]
     Active Substance: ETANERCEPT
     Indication: PSORIASIS
     Dosage: UNK UNK, UNK
     Route: 065
     Dates: start: 200410

REACTIONS (6)
  - Tick-borne fever [Unknown]
  - Laceration [Unknown]
  - Immune system disorder [Unknown]
  - Infection [Unknown]
  - Sinusitis [Unknown]
  - Mastitis [Unknown]

NARRATIVE: CASE EVENT DATE: 2015
